FAERS Safety Report 11848731 (Version 3)
Quarter: 2016Q3

REPORT INFORMATION
  Report Type: Spontaneous
  Country: SE (occurrence: SE)
  Receive Date: 20151218
  Receipt Date: 20160921
  Transmission Date: 20161109
  Serious: Yes (Hospitalization, Other)
  Sender: FDA-Public Use
  Company Number: SE-AMGEN-SWESP2015132919

PATIENT
  Age: 83 Year
  Sex: Female

DRUGS (18)
  1. ALVEDON [Concomitant]
     Active Substance: ACETAMINOPHEN
  2. METOPROLOL. [Concomitant]
     Active Substance: METOPROLOL
  3. ATACAND [Concomitant]
     Active Substance: CANDESARTAN CILEXETIL
  4. OVESTERIN [Concomitant]
     Active Substance: ESTRIOL
  5. PROLIA [Suspect]
     Active Substance: DENOSUMAB
     Indication: OSTEOPOROSIS
     Dosage: UNK
     Route: 058
     Dates: start: 20141127, end: 20151201
  6. OXYCONTIN [Concomitant]
     Active Substance: OXYCODONE HYDROCHLORIDE
  7. WARAN [Concomitant]
     Active Substance: WARFARIN SODIUM
     Dosage: UNK
  8. FURIX [Concomitant]
     Active Substance: FUROSEMIDE
  9. OXYNORM [Concomitant]
     Active Substance: OXYCODONE HYDROCHLORIDE
  10. ATORBIR [Concomitant]
     Active Substance: ATORVASTATIN
  11. PREDNISOLONE. [Concomitant]
     Active Substance: PREDNISOLONE
  12. LAXIRIVA [Concomitant]
     Dosage: UNK
     Route: 048
  13. KALEORID [Concomitant]
     Active Substance: POTASSIUM CHLORIDE
     Dosage: UNK
  14. TRAVATAN [Concomitant]
     Active Substance: TRAVOPROST
     Dosage: UNK
  15. CALCICHEW [Concomitant]
     Active Substance: CALCIUM CARBONATE
  16. DIVISUN [Concomitant]
     Dosage: UNK
  17. AMLODIPINE [Concomitant]
     Active Substance: AMLODIPINE BESYLATE
     Dosage: UNK
  18. OMEPRAZOLE. [Concomitant]
     Active Substance: OMEPRAZOLE

REACTIONS (1)
  - Atypical femur fracture [Not Recovered/Not Resolved]

NARRATIVE: CASE EVENT DATE: 20150924
